FAERS Safety Report 9482067 (Version 1)
Quarter: 2013Q3

REPORT INFORMATION
  Report Type: Spontaneous
  Country: JP (occurrence: JP)
  Receive Date: 20130828
  Receipt Date: 20130828
  Transmission Date: 20140515
  Serious: Yes (Life-Threatening, Hospitalization)
  Sender: FDA-Public Use
  Company Number: JP-MYLANLABS-2013S1018413

PATIENT
  Age: 66 Year
  Sex: Male

DRUGS (4)
  1. AMLODIPINE [Suspect]
     Indication: PRINZMETAL ANGINA
     Route: 065
  2. NICORANDIL [Suspect]
     Indication: PRINZMETAL ANGINA
     Route: 065
  3. NICORANDIL [Suspect]
     Indication: PRINZMETAL ANGINA
     Route: 042
  4. NITROGLYCERIN [Suspect]
     Indication: PRINZMETAL ANGINA
     Dosage: BEFORE SLEEP
     Route: 062

REACTIONS (4)
  - Arteriospasm coronary [Recovered/Resolved with Sequelae]
  - Cardio-respiratory arrest [Recovered/Resolved with Sequelae]
  - Neurological symptom [Unknown]
  - Drug tolerance [Unknown]
